FAERS Safety Report 8197901-8 (Version None)
Quarter: 2012Q1

REPORT INFORMATION
  Report Type: 
  Country: None (occurrence: None)
  Receive Date: 20120309
  Receipt Date: 20120305
  Transmission Date: 20120608
  Serious: Yes (Hospitalization)
  Sender: FDA-Public Use
  Company Number: US-GILEAD-2012-0049670

PATIENT
  Sex: Female

DRUGS (3)
  1. LETAIRIS [Suspect]
     Indication: PULMONARY HYPERTENSION
     Dosage: 5 MG, UNK
     Route: 048
     Dates: start: 20111228
  2. OXYGEN [Concomitant]
  3. LETAIRIS [Suspect]
     Indication: SCLERODERMA

REACTIONS (4)
  - OXYGEN SUPPLEMENTATION [None]
  - SINUS CONGESTION [None]
  - OEDEMA PERIPHERAL [None]
  - DIZZINESS [None]
